FAERS Safety Report 20962959 (Version 2)
Quarter: 2023Q1

REPORT INFORMATION
  Report Type: Spontaneous
  Country: FR (occurrence: FR)
  Receive Date: 20220615
  Receipt Date: 20230228
  Transmission Date: 20230418
  Serious: Yes (Other)
  Sender: FDA-Public Use
  Company Number: None

PATIENT
  Age: 41 Year
  Sex: Male
  Weight: 57 kg

DRUGS (4)
  1. VFEND [Suspect]
     Active Substance: VORICONAZOLE
     Indication: Bronchopulmonary aspergillosis
     Dosage: 200 MG, 2X/DAY
     Route: 048
     Dates: start: 20210217
  2. ZITHROMAX [Suspect]
     Active Substance: AZITHROMYCIN DIHYDRATE
     Indication: Atypical mycobacterial infection
     Dosage: 250 MG, 1X/DAY
     Route: 048
     Dates: start: 20191015
  3. ETHAMBUTOL HYDROCHLORIDE [Suspect]
     Active Substance: ETHAMBUTOL HYDROCHLORIDE
     Indication: Atypical mycobacterial infection
     Dosage: 1000 MG, 1X/DAY
     Route: 048
     Dates: start: 20191015
  4. AMIKACIN SULFATE [Suspect]
     Active Substance: AMIKACIN SULFATE
     Indication: Aspergillus infection
     Dosage: 250 MG, 1X/DAY
     Route: 048
     Dates: start: 20191015

REACTIONS (1)
  - Optic neuropathy [Unknown]

NARRATIVE: CASE EVENT DATE: 20220101
